FAERS Safety Report 11215605 (Version 1)
Quarter: 2015Q2

REPORT INFORMATION
  Report Type: Spontaneous
  Country: US (occurrence: US)
  Receive Date: 20150624
  Receipt Date: 20150624
  Transmission Date: 20150821
  Serious: Yes (Hospitalization, Disabling, Other)
  Sender: FDA-Public Use
  Company Number: US-009507513-1204USA02914

PATIENT
  Sex: Female

DRUGS (3)
  1. FOSAMAX [Suspect]
     Active Substance: ALENDRONATE SODIUM
     Dosage: 10 MG, UNK
     Route: 048
     Dates: start: 19960910, end: 20010203
  2. FOSAMAX [Suspect]
     Active Substance: ALENDRONATE SODIUM
     Indication: OSTEOPOROSIS
     Dosage: UNK
     Route: 048
     Dates: start: 19960806, end: 2004
  3. FOSAMAX [Suspect]
     Active Substance: ALENDRONATE SODIUM
     Dosage: 70 MG, QW
     Route: 048
     Dates: start: 20010203, end: 20041030

REACTIONS (29)
  - Bone disorder [Unknown]
  - Hypertension [Unknown]
  - Herpes zoster [Unknown]
  - Adverse drug reaction [Unknown]
  - Gastrooesophageal reflux disease [Unknown]
  - Cholecystectomy [Unknown]
  - Intramedullary rod insertion [Unknown]
  - Hysterectomy [Unknown]
  - Femur fracture [Recovered/Resolved]
  - Hypercholesterolaemia [Unknown]
  - Cataract operation [Unknown]
  - Cataract operation [Unknown]
  - Fibromyalgia [Unknown]
  - Device breakage [Unknown]
  - Knee arthroplasty [Unknown]
  - Internal fixation of fracture [Recovering/Resolving]
  - Device defective [Unknown]
  - Myocardial ischaemia [Unknown]
  - Appendicectomy [Unknown]
  - Arthroscopy [Unknown]
  - Myalgia [Unknown]
  - Arthralgia [Unknown]
  - Knee arthroplasty [Unknown]
  - Fracture nonunion [Recovered/Resolved]
  - Coronary artery disease [Unknown]
  - Joint crepitation [Unknown]
  - Thyroid disorder [Unknown]
  - Angiopathy [Unknown]
  - Gastritis [Unknown]

NARRATIVE: CASE EVENT DATE: 200303
